FAERS Safety Report 7935478-X (Version None)
Quarter: 2011Q4

REPORT INFORMATION
  Report Type: 
  Country: None (occurrence: None)
  Receive Date: 20111123
  Receipt Date: 20111118
  Transmission Date: 20120403
  Serious: Yes (Death, Hospitalization)
  Sender: FDA-Public Use
  Company Number: AR-BRISTOL-MYERS SQUIBB COMPANY-16239261

PATIENT
  Age: 44 Year
  Sex: Female

DRUGS (2)
  1. CAPECITABINE [Suspect]
     Dates: start: 20110101
  2. IXEMPRA KIT [Suspect]
     Dates: start: 20110101

REACTIONS (3)
  - FEBRILE NEUTROPENIA [None]
  - INTESTINAL PERFORATION [None]
  - DEATH [None]
